FAERS Safety Report 19047247 (Version 1)
Quarter: 2021Q1

REPORT INFORMATION
  Report Type: Spontaneous
  Country: CA (occurrence: CA)
  Receive Date: 20210323
  Receipt Date: 20210323
  Transmission Date: 20210420
  Serious: Yes (Other)
  Sender: FDA-Public Use
  Company Number: CA-JNJFOC-20210334540

PATIENT
  Age: 20 Year
  Sex: Male
  Weight: 60 kg

DRUGS (1)
  1. INFLIXIMAB, RECOMBINANT [Suspect]
     Active Substance: INFLIXIMAB
     Indication: CROHN^S DISEASE
     Route: 042

REACTIONS (9)
  - Blood pressure diastolic decreased [Recovered/Resolved]
  - Erythema of eyelid [Recovered/Resolved]
  - Oropharyngeal pain [Recovered/Resolved]
  - Off label use [Recovered/Resolved]
  - C-reactive protein increased [Recovered/Resolved]
  - Heart rate decreased [Recovered/Resolved]
  - Blepharitis [Recovered/Resolved]
  - Eye infection bacterial [Recovered/Resolved]
  - Inappropriate schedule of product administration [Recovered/Resolved]
